FAERS Safety Report 6435911-9 (Version None)
Quarter: 2009Q4

REPORT INFORMATION
  Report Type: 
  Country: None (occurrence: None)
  Receive Date: 20091110
  Receipt Date: 20091110
  Transmission Date: 20100525
  Serious: No
  Sender: FDA-Public Use
  Company Number: None

PATIENT
  Age: 67 Year
  Sex: Female
  Weight: 74.39 kg

DRUGS (1)
  1. NAFTIFINE [Suspect]
     Indication: FUNGAL INFECTION
     Dosage: APPLY BID TOP
     Route: 061
     Dates: start: 20090610, end: 20091001

REACTIONS (1)
  - BLISTER [None]
